FAERS Safety Report 7861567-4 (Version None)
Quarter: 2011Q4

REPORT INFORMATION
  Report Type: 
  Country: None (occurrence: None)
  Receive Date: 20111027
  Receipt Date: 20111020
  Transmission Date: 20120403
  Serious: Yes (Other)
  Sender: FDA-Public Use
  Company Number: JP-PFIZER INC-2011216328

PATIENT
  Age: 13 Year
  Sex: Male
  Weight: 77 kg

DRUGS (1)
  1. NONACOG ALFA [Suspect]
     Indication: HAEMORRHAGE PROPHYLAXIS
     Dosage: 2000 IU, 2X/WEEK
     Route: 042
     Dates: start: 20110530, end: 20110623

REACTIONS (6)
  - HEADACHE [None]
  - NAUSEA [None]
  - INJECTION SITE PRURITUS [None]
  - VOMITING [None]
  - DIZZINESS [None]
  - URTICARIA [None]
